FAERS Safety Report 9653744 (Version 3)
Quarter: 2013Q4

REPORT INFORMATION
  Report Type: Spontaneous
  Country: PL (occurrence: PL)
  Receive Date: 20131029
  Receipt Date: 20131119
  Transmission Date: 20140711
  Serious: Yes (Other)
  Sender: FDA-Public Use
  Company Number: PL-ROCHE-1295596

PATIENT
  Age: 47 Year
  Sex: Female

DRUGS (12)
  1. MABTHERA [Suspect]
     Indication: DIFFUSE LARGE B-CELL LYMPHOMA
     Route: 065
  2. CYCLOPHOSPHAMIDE [Concomitant]
     Indication: DIFFUSE LARGE B-CELL LYMPHOMA
  3. DOXORUBICIN [Concomitant]
     Indication: DIFFUSE LARGE B-CELL LYMPHOMA
  4. VINCRISTINE [Concomitant]
     Indication: DIFFUSE LARGE B-CELL LYMPHOMA
  5. PREDNISOLONE [Concomitant]
     Indication: DIFFUSE LARGE B-CELL LYMPHOMA
  6. ETOPOSIDE [Concomitant]
  7. METHYLPREDNISOLONE [Concomitant]
  8. CYTARABINE [Concomitant]
  9. CISPLATIN [Concomitant]
  10. BUSULFAN [Concomitant]
  11. MELPHALAN [Concomitant]
  12. METYPRED (POLAND) [Concomitant]

REACTIONS (5)
  - Thrombocytopenia [Unknown]
  - Haemorrhagic diathesis [Unknown]
  - Drug ineffective [Unknown]
  - Anaemia [Unknown]
  - Granulocytopenia [Unknown]
